FAERS Safety Report 9516781 (Version 1)
Quarter: 2013Q3

REPORT INFORMATION
  Report Type: Spontaneous
  Country: US (occurrence: None)
  Receive Date: 20130903
  Receipt Date: 20130903
  Transmission Date: 20140515
  Serious: Yes (Hospitalization)
  Sender: FDA-Public Use
  Company Number: 91371

PATIENT
  Age: 39 Year
  Sex: Female

DRUGS (2)
  1. LEUCOVORIN CALCIUM [Suspect]
     Indication: RECTAL ADENOCARCINOMA
     Dates: start: 20090922
  2. LEUCOVORIN CALCIUM [Suspect]
     Indication: ADENOCARCINOMA OF COLON
     Dates: start: 20090922

REACTIONS (4)
  - Ileus [None]
  - Hypokalaemia [None]
  - Nausea [None]
  - Vomiting [None]
